FAERS Safety Report 6672728-4 (Version None)
Quarter: 2010Q2

REPORT INFORMATION
  Report Type: 
  Country: None (occurrence: None)
  Receive Date: 20100408
  Receipt Date: 20100405
  Transmission Date: 20101027
  Serious: Yes (Death, Other)
  Sender: FDA-Public Use
  Company Number: US-ROCHE-695359

PATIENT
  Sex: Male
  Weight: 62.8 kg

DRUGS (14)
  1. BEVACIZUMAB [Suspect]
     Indication: NON-SMALL CELL LUNG CANCER
     Route: 042
     Dates: start: 20100225, end: 20100317
  2. PEMETREXED [Suspect]
     Indication: NON-SMALL CELL LUNG CANCER
     Route: 042
     Dates: start: 20100225, end: 20100317
  3. CARBOPLATIN [Suspect]
     Indication: NON-SMALL CELL LUNG CANCER
     Dosage: DOSE REPORTED: 6 D/F
     Route: 042
     Dates: start: 20100225, end: 20100317
  4. ACETAMINOFEN [Concomitant]
     Dates: start: 20100121, end: 20100325
  5. ALBUTEROL [Concomitant]
     Dates: start: 20100317, end: 20100325
  6. DEXAMETHASONE [Concomitant]
     Dates: start: 20100121
  7. DURAGESIC-100 [Concomitant]
     Dates: start: 20100317, end: 20100325
  8. LACTULOSE [Concomitant]
     Dates: start: 20100121, end: 20100325
  9. LATANOPROST [Concomitant]
     Dates: end: 20100325
  10. ATIVAN [Concomitant]
     Dates: start: 20100219, end: 20100325
  11. ZOFRAN [Concomitant]
     Dates: start: 20100126, end: 20100325
  12. PRILOSEC [Concomitant]
     Dates: start: 20100112, end: 20100325
  13. OXYCODONE [Concomitant]
     Dates: start: 20100121, end: 20100325
  14. FLEXERIL [Concomitant]
     Dates: start: 20100111, end: 20100325

REACTIONS (3)
  - CARDIAC ARREST [None]
  - DEATH [None]
  - HAEMATEMESIS [None]
